FAERS Safety Report 5026932-1 (Version None)
Quarter: 2006Q2

REPORT INFORMATION
  Report Type: 
  Country: None (occurrence: None)
  Receive Date: 20060609
  Receipt Date: 20060607
  Transmission Date: 20061013
  Serious: Yes (Hospitalization)
  Sender: FDA-Public Use
  Company Number: S05-ISL-04800-01

PATIENT
  Age: 17 Year
  Sex: Male

DRUGS (1)
  1. ESCITALOPRAM OXALATE [Suspect]
     Indication: DEPRESSION
     Dosage: 10 MG QD PO
     Route: 048
     Dates: start: 20050801, end: 20050808

REACTIONS (3)
  - ACUTE PSYCHOSIS [None]
  - DELUSIONAL DISORDER, UNSPECIFIED TYPE [None]
  - PARANOIA [None]
